FAERS Safety Report 10026085 (Version 1)
Quarter: 2014Q1

REPORT INFORMATION
  Report Type: Spontaneous
  Country: GB (occurrence: GB)
  Receive Date: 20140320
  Receipt Date: 20140320
  Transmission Date: 20141002
  Serious: Yes (Other)
  Sender: FDA-Public Use
  Company Number: GB-MYLANLABS-2014S1005497

PATIENT
  Age: 48 Year
  Sex: Male

DRUGS (8)
  1. CLOPIDOGREL [Suspect]
  2. CHAMPIX [Suspect]
     Dosage: TITRATION PACK.
  3. ASPIRIN [Suspect]
     Dosage: COMMENCED PRIOR TO APRIL 2013.
  4. FLUOXETINE [Suspect]
  5. ATORVASTATIN [Concomitant]
  6. BISOPROLOL [Concomitant]
  7. LANSOPRAZOLE [Concomitant]
  8. LOSARTAN [Concomitant]

REACTIONS (4)
  - Haematuria [Unknown]
  - Pyrexia [Unknown]
  - Myalgia [Unknown]
  - Urinary tract infection [Unknown]
